FAERS Safety Report 23777174 (Version 2)
Quarter: 2024Q2

REPORT INFORMATION
  Report Type: Spontaneous
  Country: BE (occurrence: BE)
  Receive Date: 20240424
  Receipt Date: 20240619
  Transmission Date: 20240716
  Serious: Yes (Hospitalization)
  Sender: FDA-Public Use
  Company Number: BE-BoehringerIngelheim-2024-BI-023059

PATIENT
  Age: 55 Year
  Sex: Male
  Weight: 83 kg

DRUGS (3)
  1. JARDIANCE [Suspect]
     Active Substance: EMPAGLIFLOZIN
     Indication: Diabetes mellitus
     Dates: start: 20231221, end: 20240326
  2. METFORMIN HYDROCHLORIDE [Concomitant]
     Active Substance: METFORMIN HYDROCHLORIDE
     Indication: Diabetes mellitus
  3. GLICLAZIDE [Concomitant]
     Active Substance: GLICLAZIDE
     Indication: Diabetes mellitus

REACTIONS (2)
  - Extremity necrosis [Recovered/Resolved with Sequelae]
  - Localised infection [Recovered/Resolved with Sequelae]

NARRATIVE: CASE EVENT DATE: 20240115
